FAERS Safety Report 24011747 (Version 1)
Quarter: 2024Q2

REPORT INFORMATION
  Report Type: Spontaneous
  Country: IT (occurrence: IT)
  Receive Date: 20240625
  Receipt Date: 20240625
  Transmission Date: 20240716
  Serious: Yes (Hospitalization)
  Sender: FDA-Public Use
  Company Number: IT-Jerome Stevens Pharmaceuticals, Inc.-2158500

PATIENT
  Age: 66 Year
  Sex: Female

DRUGS (6)
  1. DIGOXIN [Suspect]
     Active Substance: DIGOXIN
  2. SPIRONOLACTONE [Suspect]
     Active Substance: SPIRONOLACTONE
  3. RAMIPRIL [Concomitant]
     Active Substance: RAMIPRIL
  4. BISOPROLOL. [Concomitant]
     Active Substance: BISOPROLOL FUMARATE
  5. PRAVASTATIN [Suspect]
     Active Substance: PRAVASTATIN
  6. FUROSEMIDE [Suspect]
     Active Substance: FUROSEMIDE

REACTIONS (3)
  - BRASH syndrome [Recovering/Resolving]
  - Pneumonia [Recovering/Resolving]
  - Toxicity to various agents [Recovered/Resolved]
